FAERS Safety Report 4797013-7 (Version None)
Quarter: 2005Q3

REPORT INFORMATION
  Report Type: 
  Country: None (occurrence: None)
  Receive Date: 20050916
  Receipt Date: 20050222
  Transmission Date: 20060218
  Serious: Yes (Hospitalization)
  Sender: FDA-Public Use
  Company Number: US-JNJFOC-20050206344

PATIENT
  Age: 46 Year
  Sex: Female
  Weight: 106.1417 kg

DRUGS (5)
  1. TOPAMAX [Suspect]
     Indication: MIGRAINE
     Dosage: 50 MG, 2 IN 1 DAY, ORAL
     Route: 048
     Dates: start: 20041201
  2. LISINOPRIL [Concomitant]
  3. PRILOSEC [Concomitant]
  4. ACETYLSALICYLIC ACID SRT [Concomitant]
  5. LIPITOR [Concomitant]

REACTIONS (4)
  - BLOOD URINE PRESENT [None]
  - CALCULUS URETERIC [None]
  - PAIN [None]
  - PARAESTHESIA [None]
